FAERS Safety Report 18044213 (Version 4)
Quarter: 2022Q3

REPORT INFORMATION
  Report Type: Report from Study
  Country: JP (occurrence: JP)
  Receive Date: 20200720
  Receipt Date: 20220730
  Transmission Date: 20221027
  Serious: Yes (Hospitalization, Other)
  Sender: FDA-Public Use
  Company Number: JP-ONO-2020JP016495

PATIENT
  Age: 70 Year
  Sex: Female
  Weight: 49.3 kg

DRUGS (14)
  1. ETELCALCETIDE [Suspect]
     Active Substance: ETELCALCETIDE
     Indication: Hyperparathyroidism secondary
     Dosage: 5 MILLIGRAM, Q56H
     Route: 010
     Dates: start: 20190912, end: 20191008
  2. ETELCALCETIDE [Suspect]
     Active Substance: ETELCALCETIDE
     Dosage: 7.5 MILLIGRAM, Q56H
     Route: 010
     Dates: start: 20191010, end: 20200616
  3. ETELCALCETIDE [Suspect]
     Active Substance: ETELCALCETIDE
     Dosage: 10 MILLIGRAM, Q56H
     Route: 010
     Dates: start: 20200618
  4. CALCITRIOL [Concomitant]
     Active Substance: CALCITRIOL
     Dosage: 0.5 MICROGRAM, Q56H
     Route: 042
  5. ERYTHROPOIETIN [Concomitant]
     Active Substance: ERYTHROPOIETIN
     Dosage: 4500 INTERNATIONAL UNIT, QWK
     Route: 065
     Dates: start: 20190111, end: 20210508
  6. ERYTHROPOIETIN [Concomitant]
     Active Substance: ERYTHROPOIETIN
     Dosage: 3000 INTERNATIONAL UNIT, QWK
     Route: 065
     Dates: start: 20210511, end: 20211009
  7. ERYTHROPOIETIN [Concomitant]
     Active Substance: ERYTHROPOIETIN
     Dosage: 4500 INTERNATIONAL UNIT
     Route: 065
     Dates: start: 20211012
  8. FOSRENOL [Concomitant]
     Active Substance: LANTHANUM CARBONATE
     Dosage: 1500 MILLIGRAM, QD
     Route: 048
  9. Fesin [Concomitant]
     Dosage: 40 MILLIGRAM, QWK
     Route: 042
     Dates: start: 20190413, end: 20190626
  10. Fesin [Concomitant]
     Dosage: 40 MILLIGRAM, QWK
     Route: 042
     Dates: start: 20200314, end: 20200527
  11. Fesin [Concomitant]
     Dosage: 120 MILLIGRAM, QWK
     Route: 042
     Dates: start: 20210204, end: 20210223
  12. Fesin [Concomitant]
     Dosage: 40 MILLIGRAM, QWK
     Route: 042
     Dates: start: 20210302, end: 20210330
  13. Fesin [Concomitant]
     Dosage: 40 MILLIGRAM, QWK
     Route: 042
     Dates: start: 20210513, end: 20210727
  14. Fesin [Concomitant]
     Dosage: 40 MILLIGRAM, QWK
     Route: 042
     Dates: start: 20220407, end: 20220628

REACTIONS (7)
  - Sepsis [Recovered/Resolved]
  - Sepsis [Recovered/Resolved]
  - Sepsis [Recovering/Resolving]
  - Contusion [Recovered/Resolved]
  - Fall [Unknown]
  - Carpal tunnel syndrome [Recovering/Resolving]
  - Sepsis [Not Recovered/Not Resolved]

NARRATIVE: CASE EVENT DATE: 20191114
